FAERS Safety Report 7727038-0 (Version None)
Quarter: 2011Q3

REPORT INFORMATION
  Report Type: 
  Country: None (occurrence: None)
  Receive Date: 20110902
  Receipt Date: 20110831
  Transmission Date: 20111222
  Serious: Yes (Hospitalization, Other)
  Sender: FDA-Public Use
  Company Number: DE-ABBOTT-11P-062-0850747-00

PATIENT
  Age: 54 Year
  Sex: Male
  Weight: 90 kg

DRUGS (4)
  1. SYSTEMIC FUMAR ACID [Concomitant]
     Indication: PRODUCT USED FOR UNKNOWN INDICATION
  2. SANDIMMUNE [Concomitant]
     Indication: PRODUCT USED FOR UNKNOWN INDICATION
  3. AMLODIGAMMA [Concomitant]
     Indication: PRODUCT USED FOR UNKNOWN INDICATION
     Dosage: OPD
  4. HUMIRA [Suspect]
     Indication: PSORIASIS
     Dates: start: 20090807

REACTIONS (2)
  - APPENDICITIS PERFORATED [None]
  - INTERVERTEBRAL DISC PROTRUSION [None]
